FAERS Safety Report 5724205-2 (Version None)
Quarter: 2008Q2

REPORT INFORMATION
  Report Type: 
  Country: None (occurrence: None)
  Receive Date: 20080430
  Receipt Date: 20080416
  Transmission Date: 20081010
  Serious: Yes (Hospitalization)
  Sender: FDA-Public Use
  Company Number: GR-ABBOTT-08P-066-0447453-00

PATIENT
  Age: 73 Year
  Sex: Male

DRUGS (3)
  1. LEVOTHYROXINE SODIUM [Suspect]
     Indication: PRIMARY HYPOTHYROIDISM
  2. IMATINIB [Interacting]
     Indication: GASTROINTESTINAL STROMAL TUMOUR
  3. IMATINIB [Interacting]

REACTIONS (2)
  - DERMATITIS [None]
  - DRUG INTERACTION [None]
